FAERS Safety Report 7013908-8 (Version None)
Quarter: 2010Q3

REPORT INFORMATION
  Report Type: 
  Country: None (occurrence: None)
  Receive Date: 20100924
  Receipt Date: 20100909
  Transmission Date: 20110219
  Serious: Yes (Hospitalization)
  Sender: FDA-Public Use
  Company Number: ES-GENENTECH-306772

PATIENT
  Age: 20 Year
  Sex: Female

DRUGS (1)
  1. XOLAIR [Suspect]
     Indication: ASTHMA
     Dosage: 150 MG, UNKNOWN
     Route: 058
     Dates: start: 20100601, end: 20100901

REACTIONS (2)
  - BRONCHOSPASM [None]
  - OXYGEN SATURATION ABNORMAL [None]
